FAERS Safety Report 18214968 (Version 1)
Quarter: 2020Q3

REPORT INFORMATION
  Report Type: Report from Study
  Country: US (occurrence: US)
  Receive Date: 20200831
  Receipt Date: 20200831
  Transmission Date: 20201103
  Serious: Yes (Hospitalization)
  Sender: FDA-Public Use
  Company Number: US-TAIHO ONCOLOGY  INC-EU-2020-03102

PATIENT
  Age: 56 Year
  Sex: Female

DRUGS (7)
  1. AMLODIPINE [Concomitant]
     Active Substance: AMLODIPINE BESYLATE
  2. NORMAL SALINE [Concomitant]
     Active Substance: SODIUM CHLORIDE
  3. LONSURF [Suspect]
     Active Substance: TIPIRACIL HYDROCHLORIDE\TRIFLURIDINE
     Indication: RECTOSIGMOID CANCER
     Dosage: CYCLE UNKNOWN
     Route: 048
     Dates: start: 20200717
  4. GABAPENTIN. [Concomitant]
     Active Substance: GABAPENTIN
  5. LEVOFLOXACIN. [Concomitant]
     Active Substance: LEVOFLOXACIN
  6. NITROFURANTOIN. [Concomitant]
     Active Substance: NITROFURANTOIN
  7. OLANZAPINE. [Concomitant]
     Active Substance: OLANZAPINE

REACTIONS (2)
  - Radiotherapy [Not Recovered/Not Resolved]
  - Surgery [Not Recovered/Not Resolved]

NARRATIVE: CASE EVENT DATE: 20200826
